FAERS Safety Report 23707579 (Version 9)
Quarter: 2024Q2

REPORT INFORMATION
  Report Type: Spontaneous
  Country: GB (occurrence: GB)
  Receive Date: 20240404
  Receipt Date: 20240627
  Transmission Date: 20240716
  Serious: Yes (Other)
  Sender: FDA-Public Use
  Company Number: None

PATIENT
  Sex: Male

DRUGS (284)
  1. ACITRETIN [Suspect]
     Active Substance: ACITRETIN
     Dosage: UNK
     Route: 050
  2. ACITRETIN [Suspect]
     Active Substance: ACITRETIN
     Route: 050
  3. ACITRETIN [Suspect]
     Active Substance: ACITRETIN
     Dosage: UNK
     Route: 059
  4. ACITRETIN [Suspect]
     Active Substance: ACITRETIN
     Dosage: UNK
     Route: 059
  5. ACITRETIN [Suspect]
     Active Substance: ACITRETIN
     Indication: Psoriasis
     Dosage: UNK
     Route: 065
  6. ACITRETIN [Suspect]
     Active Substance: ACITRETIN
     Route: 058
  7. ACITRETIN [Suspect]
     Active Substance: ACITRETIN
     Route: 058
  8. ACITRETIN [Suspect]
     Active Substance: ACITRETIN
     Route: 065
  9. ACITRETIN [Suspect]
     Active Substance: ACITRETIN
     Route: 065
  10. ACITRETIN [Suspect]
     Active Substance: ACITRETIN
     Route: 065
  11. ACITRETIN [Suspect]
     Active Substance: ACITRETIN
     Route: 065
  12. ACITRETIN [Suspect]
     Active Substance: ACITRETIN
     Route: 065
  13. ACITRETIN [Suspect]
     Active Substance: ACITRETIN
     Route: 065
  14. ACITRETIN [Suspect]
     Active Substance: ACITRETIN
     Route: 065
  15. ACITRETIN [Suspect]
     Active Substance: ACITRETIN
     Route: 065
  16. ACITRETIN [Suspect]
     Active Substance: ACITRETIN
     Route: 065
  17. ACITRETIN [Suspect]
     Active Substance: ACITRETIN
     Route: 065
  18. ACITRETIN [Suspect]
     Active Substance: ACITRETIN
     Route: 065
  19. ACITRETIN [Suspect]
     Active Substance: ACITRETIN
     Route: 065
  20. ACITRETIN [Suspect]
     Active Substance: ACITRETIN
     Route: 065
  21. ACITRETIN [Suspect]
     Active Substance: ACITRETIN
     Route: 065
  22. ACITRETIN [Suspect]
     Active Substance: ACITRETIN
     Route: 065
  23. ACITRETIN [Suspect]
     Active Substance: ACITRETIN
     Route: 065
  24. ACITRETIN [Suspect]
     Active Substance: ACITRETIN
     Indication: Psoriasis
     Dosage: UNK
     Route: 065
  25. ACITRETIN [Suspect]
     Active Substance: ACITRETIN
     Dosage: UNK
     Route: 065
  26. ACITRETIN [Suspect]
     Active Substance: ACITRETIN
     Dosage: UNK
     Route: 065
  27. ACITRETIN [Suspect]
     Active Substance: ACITRETIN
     Dosage: UNK
     Route: 065
  28. ACITRETIN [Suspect]
     Active Substance: ACITRETIN
     Dosage: UNK
     Route: 065
  29. ACITRETIN [Suspect]
     Active Substance: ACITRETIN
     Dosage: UNK
     Route: 065
  30. ACITRETIN [Suspect]
     Active Substance: ACITRETIN
     Dosage: UNK
     Route: 065
  31. ACITRETIN [Suspect]
     Active Substance: ACITRETIN
     Dosage: UNK
     Route: 065
  32. ACITRETIN [Suspect]
     Active Substance: ACITRETIN
     Dosage: UNK
     Route: 050
  33. ACITRETIN [Suspect]
     Active Substance: ACITRETIN
     Dosage: UNK
     Route: 065
  34. ACITRETIN [Suspect]
     Active Substance: ACITRETIN
     Dosage: UNK
     Route: 065
  35. ACITRETIN [Suspect]
     Active Substance: ACITRETIN
     Dosage: UNK
     Route: 065
  36. ACITRETIN [Suspect]
     Active Substance: ACITRETIN
     Dosage: UNK
     Route: 065
  37. ACITRETIN [Suspect]
     Active Substance: ACITRETIN
     Dosage: UNK
     Route: 065
  38. ACITRETIN [Suspect]
     Active Substance: ACITRETIN
     Dosage: UNK
     Route: 065
  39. ACITRETIN [Suspect]
     Active Substance: ACITRETIN
     Dosage: UNK
     Route: 065
  40. ACITRETIN [Suspect]
     Active Substance: ACITRETIN
     Dosage: UNK
     Route: 065
  41. ACITRETIN [Suspect]
     Active Substance: ACITRETIN
     Dosage: UNK
     Route: 065
  42. ACITRETIN [Suspect]
     Active Substance: ACITRETIN
     Dosage: UNK
     Route: 065
  43. ACITRETIN [Suspect]
     Active Substance: ACITRETIN
     Dosage: UNK
     Route: 065
  44. ACITRETIN [Suspect]
     Active Substance: ACITRETIN
     Dosage: UNK
     Route: 065
  45. ACITRETIN [Suspect]
     Active Substance: ACITRETIN
     Dosage: UNK
     Route: 065
  46. ACITRETIN [Suspect]
     Active Substance: ACITRETIN
     Dosage: UNK
     Route: 065
  47. ACITRETIN [Suspect]
     Active Substance: ACITRETIN
     Dosage: UNK
     Route: 065
  48. ACITRETIN [Suspect]
     Active Substance: ACITRETIN
     Dosage: UNK
     Route: 065
  49. ACITRETIN [Suspect]
     Active Substance: ACITRETIN
     Dosage: UNK
     Route: 065
  50. ACITRETIN [Suspect]
     Active Substance: ACITRETIN
     Dosage: UNK
     Route: 065
  51. ACITRETIN [Suspect]
     Active Substance: ACITRETIN
     Route: 048
  52. ACITRETIN [Suspect]
     Active Substance: ACITRETIN
     Route: 050
  53. ACITRETIN [Suspect]
     Active Substance: ACITRETIN
     Route: 065
  54. ACITRETIN [Suspect]
     Active Substance: ACITRETIN
     Route: 065
  55. ACITRETIN [Suspect]
     Active Substance: ACITRETIN
     Route: 065
  56. ACITRETIN [Suspect]
     Active Substance: ACITRETIN
     Route: 065
  57. ACITRETIN [Suspect]
     Active Substance: ACITRETIN
     Route: 065
  58. ACITRETIN [Suspect]
     Active Substance: ACITRETIN
     Route: 065
  59. ACITRETIN [Suspect]
     Active Substance: ACITRETIN
     Route: 065
  60. ACITRETIN [Suspect]
     Active Substance: ACITRETIN
     Route: 065
  61. ACITRETIN [Suspect]
     Active Substance: ACITRETIN
     Route: 065
  62. ACITRETIN [Suspect]
     Active Substance: ACITRETIN
     Route: 065
  63. ACITRETIN [Suspect]
     Active Substance: ACITRETIN
     Route: 065
  64. ACITRETIN [Suspect]
     Active Substance: ACITRETIN
     Route: 065
  65. ACITRETIN [Suspect]
     Active Substance: ACITRETIN
     Route: 065
  66. ACITRETIN [Suspect]
     Active Substance: ACITRETIN
     Route: 065
  67. ACITRETIN [Suspect]
     Active Substance: ACITRETIN
     Route: 065
  68. BETAMETHASONE DIPROPIONATE [Suspect]
     Active Substance: BETAMETHASONE DIPROPIONATE
     Indication: Product used for unknown indication
     Dosage: UNK
     Route: 003
  69. BETAMETHASONE DIPROPIONATE [Suspect]
     Active Substance: BETAMETHASONE DIPROPIONATE
     Indication: Product used for unknown indication
     Dosage: UNK
     Route: 065
  70. BETAMETHASONE DIPROPIONATE [Suspect]
     Active Substance: BETAMETHASONE DIPROPIONATE
     Dosage: UNK
     Route: 065
  71. CYCLOSPORINE [Suspect]
     Active Substance: CYCLOSPORINE
     Route: 050
  72. CYCLOSPORINE [Suspect]
     Active Substance: CYCLOSPORINE
     Dosage: 300 MG, QMO
     Route: 050
  73. CYCLOSPORINE [Suspect]
     Active Substance: CYCLOSPORINE
     Dosage: 300 MG, QMO
     Route: 050
  74. CYCLOSPORINE [Suspect]
     Active Substance: CYCLOSPORINE
     Dosage: 300 MILLIGRAM, MONTHLY
     Route: 058
  75. CYCLOSPORINE [Suspect]
     Active Substance: CYCLOSPORINE
     Dosage: UNK
     Route: 050
  76. CYCLOSPORINE [Suspect]
     Active Substance: CYCLOSPORINE
     Dosage: 300 MILLIGRAM
     Route: 065
  77. CYCLOSPORINE [Suspect]
     Active Substance: CYCLOSPORINE
     Dosage: UNK
     Route: 050
  78. CYCLOSPORINE [Suspect]
     Active Substance: CYCLOSPORINE
     Dosage: UNK
     Route: 050
  79. CYCLOSPORINE [Suspect]
     Active Substance: CYCLOSPORINE
     Dosage: UNK
     Route: 050
  80. CYCLOSPORINE [Suspect]
     Active Substance: CYCLOSPORINE
     Dosage: UNK
     Route: 058
  81. CYCLOSPORINE [Suspect]
     Active Substance: CYCLOSPORINE
     Dosage: UNK
     Route: 058
  82. CYCLOSPORINE [Suspect]
     Active Substance: CYCLOSPORINE
     Indication: Psoriasis
     Dosage: UNK
     Route: 065
  83. CYCLOSPORINE [Suspect]
     Active Substance: CYCLOSPORINE
     Dosage: UNK
     Route: 065
  84. CYCLOSPORINE [Suspect]
     Active Substance: CYCLOSPORINE
     Dosage: UNK
     Route: 065
  85. CYCLOSPORINE [Suspect]
     Active Substance: CYCLOSPORINE
     Dosage: UNK
     Route: 065
  86. CYCLOSPORINE [Suspect]
     Active Substance: CYCLOSPORINE
     Dosage: UNK
     Route: 065
  87. CYCLOSPORINE [Suspect]
     Active Substance: CYCLOSPORINE
     Route: 065
  88. COCODAMOL [Suspect]
     Active Substance: ACETAMINOPHEN\CODEINE PHOSPHATE
     Dosage: 2 DOSAGE FORM, QD (2 DOSAGE FORM, TID (30/500MG 2 TABLETS TDS) ;TIME INTERVAL:)
     Route: 048
  89. COCODAMOL [Suspect]
     Active Substance: ACETAMINOPHEN\CODEINE PHOSPHATE
     Dosage: 2 DOSAGE FORM, QD (ONCE DAILY)
     Route: 048
  90. COCODAMOL [Suspect]
     Active Substance: ACETAMINOPHEN\CODEINE PHOSPHATE
     Dosage: 2 DOSAGE FORM, TID (30/500MG 2 TABLETS TDS) ;TIME INTERVAL:
     Route: 065
  91. COCODAMOL [Suspect]
     Active Substance: ACETAMINOPHEN\CODEINE PHOSPHATE
     Dosage: 6 DOSAGE FORM, QD (1 TIME EVERY DAY)
     Route: 050
  92. COCODAMOL [Suspect]
     Active Substance: ACETAMINOPHEN\CODEINE PHOSPHATE
     Dosage: 6 DOSAGE FORM, QD
     Route: 048
  93. COCODAMOL [Suspect]
     Active Substance: ACETAMINOPHEN\CODEINE PHOSPHATE
     Dosage: 6 DOSAGE FORM, QD
     Route: 065
  94. COCODAMOL [Suspect]
     Active Substance: ACETAMINOPHEN\CODEINE PHOSPHATE
     Dosage: 6 DOSAGE FORM, QD
     Route: 065
  95. COCODAMOL [Suspect]
     Active Substance: ACETAMINOPHEN\CODEINE PHOSPHATE
     Dosage: 6 DOSAGE FORM, QD
     Route: 065
  96. COCODAMOL [Suspect]
     Active Substance: ACETAMINOPHEN\CODEINE PHOSPHATE
     Indication: Product used for unknown indication
     Dosage: 6 DOSAGE FORM, QD (2 DOSAGE FORM, TID (30/500MG 2 TABLETS TDS) ;TIME INTERVAL:0.33333333 DAYS)
     Route: 048
  97. COCODAMOL [Suspect]
     Active Substance: ACETAMINOPHEN\CODEINE PHOSPHATE
     Dosage: 6 DOSAGE FORM, QD
     Route: 065
  98. COCODAMOL [Suspect]
     Active Substance: ACETAMINOPHEN\CODEINE PHOSPHATE
     Indication: Product used for unknown indication
     Dosage: 30/500MG 2 TABLETS TDS
     Route: 065
  99. COSENTYX [Suspect]
     Active Substance: SECUKINUMAB
     Dosage: 300 MG, QMO (MONTHLY)
     Route: 059
  100. COSENTYX [Suspect]
     Active Substance: SECUKINUMAB
     Dosage: 300 MG, QMO (MONTHLY)
     Route: 059
  101. COSENTYX [Suspect]
     Active Substance: SECUKINUMAB
     Dosage: 300 MG MONTHLY
     Route: 058
  102. COSENTYX [Suspect]
     Active Substance: SECUKINUMAB
     Indication: Product used for unknown indication
     Dosage: 300 MG, QMO
     Route: 058
  103. COSENTYX [Suspect]
     Active Substance: SECUKINUMAB
     Dosage: 300 MG, QMO (MONTHLY)
     Route: 058
  104. COSENTYX [Suspect]
     Active Substance: SECUKINUMAB
     Dosage: 300 MG, QMO (MONTHLY)
     Route: 058
  105. COSENTYX [Suspect]
     Active Substance: SECUKINUMAB
     Dosage: 300 MG, QMO (MONTHLY)
     Route: 058
  106. COSENTYX [Suspect]
     Active Substance: SECUKINUMAB
     Dosage: 300 MG, QMO (MONTHLY)
     Route: 058
  107. COSENTYX [Suspect]
     Active Substance: SECUKINUMAB
     Dosage: 300 MG, QMO (MONTHLY)
     Route: 058
  108. COSENTYX [Suspect]
     Active Substance: SECUKINUMAB
     Dosage: 300 MG, QMO (MONTHLY)
     Route: 058
  109. COSENTYX [Suspect]
     Active Substance: SECUKINUMAB
     Dosage: 300 MG, MONTHLY
     Route: 050
  110. COSENTYX [Suspect]
     Active Substance: SECUKINUMAB
     Dosage: 300 MG, MONTHLY
     Route: 058
  111. COSENTYX [Suspect]
     Active Substance: SECUKINUMAB
     Dosage: 300 MILLIGRAM, MONTHLY QMO (300 MG MONTHLY)
     Route: 058
  112. COSENTYX [Suspect]
     Active Substance: SECUKINUMAB
     Route: 058
  113. COSENTYX [Suspect]
     Active Substance: SECUKINUMAB
     Route: 058
  114. COSENTYX [Suspect]
     Active Substance: SECUKINUMAB
     Indication: Product used for unknown indication
     Dosage: 300 MG MONTHLY
     Route: 050
  115. COSENTYX [Suspect]
     Active Substance: SECUKINUMAB
     Dosage: 300 MG MONTHLY
     Route: 050
  116. COSENTYX [Suspect]
     Active Substance: SECUKINUMAB
     Indication: Product used for unknown indication
     Dosage: 300 MG MONTHLY
     Route: 058
  117. COSENTYX [Suspect]
     Active Substance: SECUKINUMAB
     Dosage: 300 MG, QMO (MONTHLY)
     Route: 050
  118. COSENTYX [Suspect]
     Active Substance: SECUKINUMAB
     Dosage: 300 MG, QMO (MONTHLY)
     Route: 050
  119. DAIVOBET [Suspect]
     Active Substance: BETAMETHASONE DIPROPIONATE\CALCIPOTRIENE
     Indication: Product used for unknown indication
     Dosage: UNK
     Route: 003
  120. DAIVOBET [Suspect]
     Active Substance: BETAMETHASONE DIPROPIONATE\CALCIPOTRIENE
     Dosage: UNK, (RARELY, QV)
     Route: 003
  121. DAIVOBET [Suspect]
     Active Substance: BETAMETHASONE DIPROPIONATE\CALCIPOTRIENE
     Dosage: UNK, (RARELY, QV)
     Route: 003
  122. DAIVOBET [Suspect]
     Active Substance: BETAMETHASONE DIPROPIONATE\CALCIPOTRIENE
     Dosage: UNK, (RARELY, QV)
     Route: 003
  123. DAIVOBET [Suspect]
     Active Substance: BETAMETHASONE DIPROPIONATE\CALCIPOTRIENE
     Indication: Product used for unknown indication
     Dosage: UNK, PRN, (RARELY, QV)
     Route: 048
  124. BETAMETHASONE DIPROPIONATE\CALCIPOTRIENE MONOHYDRATE [Suspect]
     Active Substance: BETAMETHASONE DIPROPIONATE\CALCIPOTRIENE MONOHYDRATE
     Dosage: RARELY, QV
     Route: 065
  125. BETAMETHASONE DIPROPIONATE\CALCIPOTRIENE MONOHYDRATE [Suspect]
     Active Substance: BETAMETHASONE DIPROPIONATE\CALCIPOTRIENE MONOHYDRATE
     Dosage: RARELY, QV
     Route: 065
  126. BETAMETHASONE DIPROPIONATE\CALCIPOTRIENE MONOHYDRATE [Suspect]
     Active Substance: BETAMETHASONE DIPROPIONATE\CALCIPOTRIENE MONOHYDRATE
     Dosage: RARELY, QV
     Route: 065
  127. BETAMETHASONE DIPROPIONATE\CALCIPOTRIENE MONOHYDRATE [Suspect]
     Active Substance: BETAMETHASONE DIPROPIONATE\CALCIPOTRIENE MONOHYDRATE
     Dosage: RARELY, QV
     Route: 065
  128. BETAMETHASONE DIPROPIONATE\CALCIPOTRIENE MONOHYDRATE [Suspect]
     Active Substance: BETAMETHASONE DIPROPIONATE\CALCIPOTRIENE MONOHYDRATE
     Dosage: RARELY, QV
     Route: 065
  129. BETAMETHASONE DIPROPIONATE\CALCIPOTRIENE MONOHYDRATE [Suspect]
     Active Substance: BETAMETHASONE DIPROPIONATE\CALCIPOTRIENE MONOHYDRATE
     Dosage: RARELY, QV
     Route: 065
  130. BETAMETHASONE DIPROPIONATE\CALCIPOTRIENE MONOHYDRATE [Suspect]
     Active Substance: BETAMETHASONE DIPROPIONATE\CALCIPOTRIENE MONOHYDRATE
     Indication: Product used for unknown indication
     Dosage: UNK (RARELY, QV)
     Route: 050
  131. BETAMETHASONE DIPROPIONATE\CALCIPOTRIENE MONOHYDRATE [Suspect]
     Active Substance: BETAMETHASONE DIPROPIONATE\CALCIPOTRIENE MONOHYDRATE
     Dosage: UNK (RARELY, QV)
     Route: 050
  132. BETAMETHASONE DIPROPIONATE\CALCIPOTRIENE MONOHYDRATE [Suspect]
     Active Substance: BETAMETHASONE DIPROPIONATE\CALCIPOTRIENE MONOHYDRATE
     Dosage: UNK (RARELY, QV)
     Route: 050
  133. BETAMETHASONE DIPROPIONATE\CALCIPOTRIENE MONOHYDRATE [Suspect]
     Active Substance: BETAMETHASONE DIPROPIONATE\CALCIPOTRIENE MONOHYDRATE
     Dosage: UNK (RARELY, QV)
     Route: 065
  134. BETAMETHASONE DIPROPIONATE\CALCIPOTRIENE MONOHYDRATE [Suspect]
     Active Substance: BETAMETHASONE DIPROPIONATE\CALCIPOTRIENE MONOHYDRATE
     Dosage: UNK (RARELY, QV)
     Route: 065
  135. BETAMETHASONE DIPROPIONATE\CALCIPOTRIENE MONOHYDRATE [Suspect]
     Active Substance: BETAMETHASONE DIPROPIONATE\CALCIPOTRIENE MONOHYDRATE
     Dosage: UNK (RARELY, QV); ;
     Route: 050
  136. BETAMETHASONE DIPROPIONATE\CALCIPOTRIENE MONOHYDRATE [Suspect]
     Active Substance: BETAMETHASONE DIPROPIONATE\CALCIPOTRIENE MONOHYDRATE
     Dosage: UNK (RARELY, QV); ;
     Route: 050
  137. BETAMETHASONE DIPROPIONATE\CALCIPOTRIENE MONOHYDRATE [Suspect]
     Active Substance: BETAMETHASONE DIPROPIONATE\CALCIPOTRIENE MONOHYDRATE
     Dosage: UNK (RARELY, QV); ;
     Route: 050
  138. BETAMETHASONE DIPROPIONATE\CALCIPOTRIENE MONOHYDRATE [Suspect]
     Active Substance: BETAMETHASONE DIPROPIONATE\CALCIPOTRIENE MONOHYDRATE
     Dosage: UNK (RARELY, QV); ;; ;
     Route: 048
  139. BETAMETHASONE DIPROPIONATE\CALCIPOTRIENE MONOHYDRATE [Suspect]
     Active Substance: BETAMETHASONE DIPROPIONATE\CALCIPOTRIENE MONOHYDRATE
     Dosage: UNK (RARELY, QV); ;; ;
     Route: 048
  140. BETAMETHASONE DIPROPIONATE\CALCIPOTRIENE MONOHYDRATE [Suspect]
     Active Substance: BETAMETHASONE DIPROPIONATE\CALCIPOTRIENE MONOHYDRATE
     Dosage: UNK, AS NEEDED (RARELY, QV)
     Route: 065
  141. BETAMETHASONE DIPROPIONATE\CALCIPOTRIENE MONOHYDRATE [Suspect]
     Active Substance: BETAMETHASONE DIPROPIONATE\CALCIPOTRIENE MONOHYDRATE
     Dosage: UNK; ;
     Route: 050
  142. BETAMETHASONE DIPROPIONATE\CALCIPOTRIENE MONOHYDRATE [Suspect]
     Active Substance: BETAMETHASONE DIPROPIONATE\CALCIPOTRIENE MONOHYDRATE
     Indication: Product used for unknown indication
     Dosage: RARELY, QV
     Route: 065
  143. BETAMETHASONE DIPROPIONATE\CALCIPOTRIENE MONOHYDRATE [Suspect]
     Active Substance: BETAMETHASONE DIPROPIONATE\CALCIPOTRIENE MONOHYDRATE
     Dosage: RARELY, QV
     Route: 065
  144. BETAMETHASONE DIPROPIONATE\CALCIPOTRIENE MONOHYDRATE [Suspect]
     Active Substance: BETAMETHASONE DIPROPIONATE\CALCIPOTRIENE MONOHYDRATE
     Dosage: RARELY, QV
     Route: 065
  145. BETAMETHASONE DIPROPIONATE\CALCIPOTRIENE MONOHYDRATE [Suspect]
     Active Substance: BETAMETHASONE DIPROPIONATE\CALCIPOTRIENE MONOHYDRATE
     Dosage: RARELY, QV
     Route: 065
  146. BETAMETHASONE DIPROPIONATE\CALCIPOTRIENE MONOHYDRATE [Suspect]
     Active Substance: BETAMETHASONE DIPROPIONATE\CALCIPOTRIENE MONOHYDRATE
     Dosage: RARELY, QV
     Route: 065
  147. BETAMETHASONE DIPROPIONATE\CALCIPOTRIENE MONOHYDRATE [Suspect]
     Active Substance: BETAMETHASONE DIPROPIONATE\CALCIPOTRIENE MONOHYDRATE
     Dosage: RARELY, QV
     Route: 065
  148. BETAMETHASONE DIPROPIONATE\CALCIPOTRIENE MONOHYDRATE [Suspect]
     Active Substance: BETAMETHASONE DIPROPIONATE\CALCIPOTRIENE MONOHYDRATE
     Dosage: RARELY, QV
     Route: 065
  149. BETAMETHASONE DIPROPIONATE\CALCIPOTRIENE MONOHYDRATE [Suspect]
     Active Substance: BETAMETHASONE DIPROPIONATE\CALCIPOTRIENE MONOHYDRATE
     Dosage: RARELY, QV
     Route: 065
  150. BETAMETHASONE DIPROPIONATE\CALCIPOTRIENE MONOHYDRATE [Suspect]
     Active Substance: BETAMETHASONE DIPROPIONATE\CALCIPOTRIENE MONOHYDRATE
     Dosage: RARELY, QV
     Route: 065
  151. BETAMETHASONE DIPROPIONATE\CALCIPOTRIENE MONOHYDRATE [Suspect]
     Active Substance: BETAMETHASONE DIPROPIONATE\CALCIPOTRIENE MONOHYDRATE
     Dosage: RARELY, QV
     Route: 065
  152. BETAMETHASONE DIPROPIONATE\CALCIPOTRIENE MONOHYDRATE [Suspect]
     Active Substance: BETAMETHASONE DIPROPIONATE\CALCIPOTRIENE MONOHYDRATE
     Dosage: RARELY, QV
     Route: 065
  153. BETAMETHASONE DIPROPIONATE\CALCIPOTRIENE MONOHYDRATE [Suspect]
     Active Substance: BETAMETHASONE DIPROPIONATE\CALCIPOTRIENE MONOHYDRATE
     Dosage: RARELY, QV
     Route: 065
  154. BETAMETHASONE DIPROPIONATE\CALCIPOTRIENE MONOHYDRATE [Suspect]
     Active Substance: BETAMETHASONE DIPROPIONATE\CALCIPOTRIENE MONOHYDRATE
     Dosage: RARELY, QV
     Route: 065
  155. HUMIRA [Suspect]
     Active Substance: ADALIMUMAB
     Route: 050
  156. HUMIRA [Suspect]
     Active Substance: ADALIMUMAB
     Route: 059
  157. HUMIRA [Suspect]
     Active Substance: ADALIMUMAB
     Indication: Psoriasis
     Dosage: UNK
     Route: 003
  158. HUMIRA [Suspect]
     Active Substance: ADALIMUMAB
     Dosage: UNK
     Route: 050
  159. HUMIRA [Suspect]
     Active Substance: ADALIMUMAB
     Dosage: UNK
     Route: 059
  160. HUMIRA [Suspect]
     Active Substance: ADALIMUMAB
     Dosage: UNK
     Route: 059
  161. HUMIRA [Suspect]
     Active Substance: ADALIMUMAB
     Route: 058
  162. HUMIRA [Suspect]
     Active Substance: ADALIMUMAB
     Route: 065
  163. HUMIRA [Suspect]
     Active Substance: ADALIMUMAB
     Route: 065
  164. HUMIRA [Suspect]
     Active Substance: ADALIMUMAB
     Route: 065
  165. HUMIRA [Suspect]
     Active Substance: ADALIMUMAB
     Dosage: UNK
     Route: 003
  166. HUMIRA [Suspect]
     Active Substance: ADALIMUMAB
     Dosage: UNK
     Route: 050
  167. HUMIRA [Suspect]
     Active Substance: ADALIMUMAB
     Dosage: UNK
     Route: 050
  168. HUMIRA [Suspect]
     Active Substance: ADALIMUMAB
     Dosage: UNK
     Route: 050
  169. HUMIRA [Suspect]
     Active Substance: ADALIMUMAB
     Dosage: UNK
     Route: 050
  170. HUMIRA [Suspect]
     Active Substance: ADALIMUMAB
     Dosage: UNK
     Route: 058
  171. HUMIRA [Suspect]
     Active Substance: ADALIMUMAB
     Dosage: UNK
     Route: 065
  172. HUMIRA [Suspect]
     Active Substance: ADALIMUMAB
     Dosage: UNK
     Route: 065
  173. HUMIRA [Suspect]
     Active Substance: ADALIMUMAB
     Dosage: UNK
     Route: 065
  174. HUMIRA [Suspect]
     Active Substance: ADALIMUMAB
     Dosage: UNK
     Route: 065
  175. HUMIRA [Suspect]
     Active Substance: ADALIMUMAB
     Dosage: UNK
     Route: 065
  176. HUMIRA [Suspect]
     Active Substance: ADALIMUMAB
     Dosage: UNK
     Route: 065
  177. HUMIRA [Suspect]
     Active Substance: ADALIMUMAB
     Route: 050
  178. HUMIRA [Suspect]
     Active Substance: ADALIMUMAB
     Route: 065
  179. HYDROXYUREA [Suspect]
     Active Substance: HYDROXYUREA
     Indication: Psoriasis
     Dosage: UNK
     Route: 065
  180. HYDROXYUREA [Suspect]
     Active Substance: HYDROXYUREA
     Route: 065
  181. HYDROXYUREA [Suspect]
     Active Substance: HYDROXYUREA
     Route: 065
  182. HYDROXYUREA [Suspect]
     Active Substance: HYDROXYUREA
     Route: 065
  183. HYDROXYUREA [Suspect]
     Active Substance: HYDROXYUREA
     Route: 065
  184. HYDROXYUREA [Suspect]
     Active Substance: HYDROXYUREA
     Route: 065
  185. HYDROXYUREA [Suspect]
     Active Substance: HYDROXYUREA
     Dosage: UNK
     Route: 003
  186. HYDROXYUREA [Suspect]
     Active Substance: HYDROXYUREA
     Dosage: UNK
     Route: 050
  187. HYDROXYUREA [Suspect]
     Active Substance: HYDROXYUREA
     Dosage: UNK
     Route: 050
  188. HYDROXYUREA [Suspect]
     Active Substance: HYDROXYUREA
     Dosage: UNK
     Route: 050
  189. HYDROXYUREA [Suspect]
     Active Substance: HYDROXYUREA
     Dosage: UNK
     Route: 065
  190. HYDROXYUREA [Suspect]
     Active Substance: HYDROXYUREA
     Dosage: UNK
     Route: 065
  191. HYDROXYUREA [Suspect]
     Active Substance: HYDROXYUREA
     Dosage: UNK
     Route: 065
  192. HYDROXYUREA [Suspect]
     Active Substance: HYDROXYUREA
     Dosage: UNK
     Route: 065
  193. HYDROXYUREA [Suspect]
     Active Substance: HYDROXYUREA
     Dosage: UNK
     Route: 065
  194. HYDROXYUREA [Suspect]
     Active Substance: HYDROXYUREA
     Dosage: UNK
     Route: 065
  195. HYDROXYUREA [Suspect]
     Active Substance: HYDROXYUREA
     Dosage: UNK
     Route: 065
  196. HYDROXYUREA [Suspect]
     Active Substance: HYDROXYUREA
     Dosage: UNK
     Route: 065
  197. HYDROXYUREA [Suspect]
     Active Substance: HYDROXYUREA
     Dosage: UNK
     Route: 065
  198. HYDROXYUREA [Suspect]
     Active Substance: HYDROXYUREA
     Dosage: UNK
     Route: 065
  199. HYDROXYUREA [Suspect]
     Active Substance: HYDROXYUREA
     Dosage: UNK
     Route: 065
  200. HYDROXYUREA [Suspect]
     Active Substance: HYDROXYUREA
     Dosage: UNK
     Route: 065
  201. HYDROXYUREA [Suspect]
     Active Substance: HYDROXYUREA
     Route: 050
  202. HYDROXYUREA [Suspect]
     Active Substance: HYDROXYUREA
     Route: 050
  203. HYDROXYUREA [Suspect]
     Active Substance: HYDROXYUREA
     Route: 065
  204. METHOTREXATE [Suspect]
     Active Substance: METHOTREXATE
     Dosage: UNK
     Route: 065
  205. METHOTREXATE [Suspect]
     Active Substance: METHOTREXATE
     Dosage: 2 DOSAGE FORM, TID (30/500MG 2 TABLETS TDS) ;TIME INTERVAL
     Route: 048
  206. METHOTREXATE [Suspect]
     Active Substance: METHOTREXATE
     Dosage: UNK
     Route: 050
  207. METHOTREXATE [Suspect]
     Active Substance: METHOTREXATE
     Dosage: UNK
     Route: 050
  208. METHOTREXATE [Suspect]
     Active Substance: METHOTREXATE
     Dosage: UNK
     Route: 050
  209. METHOTREXATE [Suspect]
     Active Substance: METHOTREXATE
     Dosage: UNK
     Route: 050
  210. METHOTREXATE [Suspect]
     Active Substance: METHOTREXATE
     Indication: Psoriasis
     Dosage: UNK
     Route: 065
  211. METHOTREXATE [Suspect]
     Active Substance: METHOTREXATE
     Dosage: UNK
     Route: 065
  212. METHOTREXATE [Suspect]
     Active Substance: METHOTREXATE
     Dosage: UNK
     Route: 065
  213. METHOTREXATE [Suspect]
     Active Substance: METHOTREXATE
     Dosage: UNK
     Route: 065
  214. METHOTREXATE [Suspect]
     Active Substance: METHOTREXATE
     Dosage: UNK
     Route: 065
  215. METHOTREXATE [Suspect]
     Active Substance: METHOTREXATE
     Dosage: UNK
     Route: 065
  216. METHOTREXATE [Suspect]
     Active Substance: METHOTREXATE
     Route: 050
  217. METHOTREXATE [Suspect]
     Active Substance: METHOTREXATE
     Route: 050
  218. METHOTREXATE [Suspect]
     Active Substance: METHOTREXATE
     Dosage: UNK
     Route: 058
  219. METHOTREXATE [Suspect]
     Active Substance: METHOTREXATE
     Indication: Psoriasis
     Dosage: UNK
     Route: 065
  220. METHOTREXATE [Suspect]
     Active Substance: METHOTREXATE
     Dosage: UNK
     Route: 065
  221. ACETAMINOPHEN\CODEINE PHOSPHATE [Suspect]
     Active Substance: ACETAMINOPHEN\CODEINE PHOSPHATE
     Indication: Product used for unknown indication
     Dosage: 2 DOSAGE FORM, TID (30/500MG 2 TABLETS TDS)6 DOSAGE FORM, QD
     Route: 048
  222. ACETAMINOPHEN\CODEINE PHOSPHATE [Suspect]
     Active Substance: ACETAMINOPHEN\CODEINE PHOSPHATE
     Indication: Product used for unknown indication
     Dosage: 6 DF, QD
     Route: 048
  223. SECUKINUMAB [Suspect]
     Active Substance: SECUKINUMAB
     Dosage: 300 MILLIGRAM (300 MG MONTHLY)
     Route: 065
  224. SECUKINUMAB [Suspect]
     Active Substance: SECUKINUMAB
     Dosage: 300 MILLIGRAM (300 MG MONTHLY)
     Route: 065
  225. SECUKINUMAB [Suspect]
     Active Substance: SECUKINUMAB
     Indication: Product used for unknown indication
     Dosage: 300 MG MONTHLY
     Route: 065
  226. SECUKINUMAB [Suspect]
     Active Substance: SECUKINUMAB
     Indication: Product used for unknown indication
     Dosage: 300 MG, QMO
     Route: 065
  227. SECUKINUMAB [Suspect]
     Active Substance: SECUKINUMAB
     Dosage: 300 MG, QMO, (OROMUCOSAL SUSPENSION)
     Route: 058
  228. SECUKINUMAB [Suspect]
     Active Substance: SECUKINUMAB
     Dosage: 300 MILLIGRAM (300 MG MONTHLY)
     Route: 058
  229. SECUKINUMAB [Suspect]
     Active Substance: SECUKINUMAB
     Dosage: 300 MILLIGRAM (300 MG MONTHLY)(300 MG, QMO) OROMUCOSAL SUSPENSION
     Route: 058
  230. SECUKINUMAB [Suspect]
     Active Substance: SECUKINUMAB
     Indication: Product used for unknown indication
     Dosage: 300 MG, QMO (MONTHLY)
     Route: 050
  231. SECUKINUMAB [Suspect]
     Active Substance: SECUKINUMAB
     Dosage: 300 MILLIGRAM
     Route: 065
  232. SECUKINUMAB [Suspect]
     Active Substance: SECUKINUMAB
     Dosage: 300 MILLIGRAM (300 MG MONTHLY)
     Route: 050
  233. SECUKINUMAB [Suspect]
     Active Substance: SECUKINUMAB
     Dosage: 300 MILLIGRAM (300 MG MONTHLY)
     Route: 065
  234. STELARA [Suspect]
     Active Substance: USTEKINUMAB
     Dosage: UNK
     Route: 065
  235. STELARA [Suspect]
     Active Substance: USTEKINUMAB
     Dosage: UNK
     Route: 050
  236. STELARA [Suspect]
     Active Substance: USTEKINUMAB
     Dosage: UNK
     Route: 050
  237. STELARA [Suspect]
     Active Substance: USTEKINUMAB
     Dosage: UNK
     Route: 059
  238. STELARA [Suspect]
     Active Substance: USTEKINUMAB
     Indication: Psoriasis
     Dosage: UNK
     Route: 065
  239. STELARA [Suspect]
     Active Substance: USTEKINUMAB
     Dosage: UNK
     Route: 065
  240. STELARA [Suspect]
     Active Substance: USTEKINUMAB
     Dosage: UNK
     Route: 050
  241. STELARA [Suspect]
     Active Substance: USTEKINUMAB
     Dosage: UNK
     Route: 050
  242. STELARA [Suspect]
     Active Substance: USTEKINUMAB
     Dosage: UNK
     Route: 050
  243. STELARA [Suspect]
     Active Substance: USTEKINUMAB
     Dosage: UNK
     Route: 058
  244. STELARA [Suspect]
     Active Substance: USTEKINUMAB
     Dosage: UNK
     Route: 058
  245. STELARA [Suspect]
     Active Substance: USTEKINUMAB
     Dosage: UNK
     Route: 058
  246. STELARA [Suspect]
     Active Substance: USTEKINUMAB
     Dosage: UNK
     Route: 058
  247. STELARA [Suspect]
     Active Substance: USTEKINUMAB
     Dosage: UNK
     Route: 058
  248. STELARA [Suspect]
     Active Substance: USTEKINUMAB
     Dosage: UNK
     Route: 058
  249. STELARA [Suspect]
     Active Substance: USTEKINUMAB
     Dosage: UNK
     Route: 058
  250. STELARA [Suspect]
     Active Substance: USTEKINUMAB
     Dosage: UNK
     Route: 058
  251. STELARA [Suspect]
     Active Substance: USTEKINUMAB
     Dosage: UNK
     Route: 058
  252. STELARA [Suspect]
     Active Substance: USTEKINUMAB
     Dosage: UNK
     Route: 058
  253. STELARA [Suspect]
     Active Substance: USTEKINUMAB
     Dosage: UNK
     Route: 058
  254. STELARA [Suspect]
     Active Substance: USTEKINUMAB
     Dosage: UNK
     Route: 058
  255. STELARA [Suspect]
     Active Substance: USTEKINUMAB
     Dosage: UNK
     Route: 058
  256. STELARA [Suspect]
     Active Substance: USTEKINUMAB
     Dosage: UNK
     Route: 058
  257. STELARA [Suspect]
     Active Substance: USTEKINUMAB
     Dosage: UNK
     Route: 058
  258. STELARA [Suspect]
     Active Substance: USTEKINUMAB
     Dosage: UNK
     Route: 058
  259. STELARA [Suspect]
     Active Substance: USTEKINUMAB
     Dosage: UNK
     Route: 058
  260. STELARA [Suspect]
     Active Substance: USTEKINUMAB
     Dosage: UNK
     Route: 058
  261. STELARA [Suspect]
     Active Substance: USTEKINUMAB
     Dosage: UNK
     Route: 058
  262. STELARA [Suspect]
     Active Substance: USTEKINUMAB
     Dosage: UNK
     Route: 058
  263. STELARA [Suspect]
     Active Substance: USTEKINUMAB
     Dosage: UNK
     Route: 058
  264. STELARA [Suspect]
     Active Substance: USTEKINUMAB
     Dosage: UNK
     Route: 058
  265. STELARA [Suspect]
     Active Substance: USTEKINUMAB
     Dosage: UNK
     Route: 058
  266. STELARA [Suspect]
     Active Substance: USTEKINUMAB
     Dosage: UNK
     Route: 058
  267. STELARA [Suspect]
     Active Substance: USTEKINUMAB
     Dosage: UNK
     Route: 058
  268. STELARA [Suspect]
     Active Substance: USTEKINUMAB
     Dosage: UNK
     Route: 058
  269. STELARA [Suspect]
     Active Substance: USTEKINUMAB
     Dosage: UNK
     Route: 065
  270. STELARA [Suspect]
     Active Substance: USTEKINUMAB
     Dosage: UNK
     Route: 065
  271. STELARA [Suspect]
     Active Substance: USTEKINUMAB
     Route: 050
  272. STELARA [Suspect]
     Active Substance: USTEKINUMAB
     Route: 058
  273. STELARA [Suspect]
     Active Substance: USTEKINUMAB
     Route: 058
  274. STELARA [Suspect]
     Active Substance: USTEKINUMAB
     Route: 058
  275. STELARA [Suspect]
     Active Substance: USTEKINUMAB
     Route: 058
  276. STELARA [Suspect]
     Active Substance: USTEKINUMAB
     Route: 058
  277. STELARA [Suspect]
     Active Substance: USTEKINUMAB
     Route: 058
  278. STELARA [Suspect]
     Active Substance: USTEKINUMAB
     Route: 058
  279. STELARA [Suspect]
     Active Substance: USTEKINUMAB
     Route: 058
  280. STELARA [Suspect]
     Active Substance: USTEKINUMAB
     Route: 058
  281. STELARA [Suspect]
     Active Substance: USTEKINUMAB
     Route: 058
  282. STELARA [Suspect]
     Active Substance: USTEKINUMAB
     Route: 058
  283. STELARA [Suspect]
     Active Substance: USTEKINUMAB
     Route: 058
  284. STELARA [Suspect]
     Active Substance: USTEKINUMAB
     Route: 058

REACTIONS (19)
  - Wheezing [Unknown]
  - Wheezing [Unknown]
  - Hypertension [Unknown]
  - Hypertension [Unknown]
  - Rash [Unknown]
  - Burning sensation [Unknown]
  - Skin hyperpigmentation [Unknown]
  - Chest pain [Unknown]
  - Pruritus [Unknown]
  - Drug ineffective [Unknown]
  - Drug ineffective [Unknown]
  - Therapeutic product effect incomplete [Unknown]
  - Therapeutic product effect incomplete [Unknown]
  - Chest pain [Unknown]
  - Rash pruritic [Unknown]
  - Pruritus [Unknown]
  - Burning sensation [Unknown]
  - Rash [Unknown]
  - Skin hyperpigmentation [Unknown]
